FAERS Safety Report 4783671-X (Version None)
Quarter: 2005Q3

REPORT INFORMATION
  Report Type: 
  Country: None (occurrence: None)
  Receive Date: 20050928
  Receipt Date: 20050921
  Transmission Date: 20060218
  Serious: Yes (Other)
  Sender: FDA-Public Use
  Company Number: 217945

PATIENT
  Age: 76 Year
  Sex: Male
  Weight: 41 kg

DRUGS (28)
  1. RITUXAN [Suspect]
     Indication: NON-HODGKIN'S LYMPHOMA
     Dosage: 500 MG, INTRAVENOUS
     Route: 042
     Dates: start: 20040811
  2. RITUXAN [Suspect]
     Indication: NON-HODGKIN'S LYMPHOMA
     Dosage: 500 MG, INTRAVENOUS
     Route: 042
     Dates: start: 20040901
  3. RITUXAN [Suspect]
     Indication: NON-HODGKIN'S LYMPHOMA
     Dosage: 500 MG, INTRAVENOUS
     Route: 042
     Dates: start: 20040922
  4. RITUXAN [Suspect]
     Indication: NON-HODGKIN'S LYMPHOMA
     Dosage: 500 MG, INTRAVENOUS
     Route: 042
     Dates: start: 20041013
  5. RITUXAN [Suspect]
     Indication: NON-HODGKIN'S LYMPHOMA
     Dosage: 500 MG, INTRAVENOUS
     Route: 042
     Dates: start: 20041104
  6. RITUXAN [Suspect]
     Indication: NON-HODGKIN'S LYMPHOMA
     Dosage: 500 MG, INTRAVENOUS
     Route: 042
     Dates: start: 20041124
  7. RITUXAN [Suspect]
     Indication: NON-HODGKIN'S LYMPHOMA
     Dosage: 500 MG, INTRAVENOUS
     Route: 042
     Dates: start: 20050112
  8. ADRIAMYCIN PFS [Suspect]
     Indication: NON-HODGKIN'S LYMPHOMA
     Dosage: 40 MG, INTRAVENOUS
     Route: 042
     Dates: start: 20040802
  9. ADRIAMYCIN PFS [Suspect]
     Indication: NON-HODGKIN'S LYMPHOMA
     Dosage: 40 MG, INTRAVENOUS
     Route: 042
     Dates: start: 20040901
  10. ADRIAMYCIN PFS [Suspect]
     Indication: NON-HODGKIN'S LYMPHOMA
     Dosage: 40 MG, INTRAVENOUS
     Route: 042
     Dates: start: 20041013
  11. ADRIAMYCIN PFS [Suspect]
     Indication: NON-HODGKIN'S LYMPHOMA
     Dosage: 40 MG, INTRAVENOUS
     Route: 042
     Dates: start: 20041104
  12. ADRIAMYCIN PFS [Suspect]
     Indication: NON-HODGKIN'S LYMPHOMA
     Dosage: 40 MG, INTRAVENOUS
     Route: 042
     Dates: start: 20041124
  13. ADRIAMYCIN PFS [Suspect]
     Indication: NON-HODGKIN'S LYMPHOMA
     Dosage: 40 MG, INTRAVENOUS
     Route: 042
     Dates: start: 20050112
  14. ADRIAMYCIN PFS [Suspect]
     Indication: NON-HODGKIN'S LYMPHOMA
     Dosage: 40 MG, INTRAVENOUS
     Route: 042
     Dates: start: 20050112
  15. CYCLOPHOSPHAMIDE [Suspect]
     Indication: NON-HODGKIN'S LYMPHOMA
     Dosage: 600, INTRAVENOUS
     Route: 042
     Dates: start: 20040802
  16. CYCLOPHOSPHAMIDE [Suspect]
     Indication: NON-HODGKIN'S LYMPHOMA
     Dosage: 600, INTRAVENOUS
     Route: 042
     Dates: start: 20040901
  17. CYCLOPHOSPHAMIDE [Suspect]
     Indication: NON-HODGKIN'S LYMPHOMA
     Dosage: 600, INTRAVENOUS
     Route: 042
     Dates: start: 20040922
  18. CYCLOPHOSPHAMIDE [Suspect]
     Indication: NON-HODGKIN'S LYMPHOMA
     Dosage: 600, INTRAVENOUS
     Route: 042
     Dates: start: 20041013
  19. CYCLOPHOSPHAMIDE [Suspect]
     Indication: NON-HODGKIN'S LYMPHOMA
     Dosage: 600, INTRAVENOUS
     Route: 042
     Dates: start: 20041124
  20. CYCLOPHOSPHAMIDE [Suspect]
     Indication: NON-HODGKIN'S LYMPHOMA
     Dosage: 600, INTRAVENOUS
     Route: 042
     Dates: start: 20050112
  21. ONCOVIN [Suspect]
     Indication: NON-HODGKIN'S LYMPHOMA
     Dosage: 1 MG,  INTRAVENOUS
     Route: 042
     Dates: start: 20040802
  22. ONCOVIN [Suspect]
     Indication: NON-HODGKIN'S LYMPHOMA
     Dosage: 1 MG,  INTRAVENOUS
     Route: 042
     Dates: start: 20040901
  23. ONCOVIN [Suspect]
     Indication: NON-HODGKIN'S LYMPHOMA
     Dosage: 1 MG,  INTRAVENOUS
     Route: 042
     Dates: start: 20040922
  24. ONCOVIN [Suspect]
     Indication: NON-HODGKIN'S LYMPHOMA
     Dosage: 1 MG,  INTRAVENOUS
     Route: 042
     Dates: start: 20041104
  25. ONCOVIN [Suspect]
     Indication: NON-HODGKIN'S LYMPHOMA
     Dosage: 1 MG,  INTRAVENOUS
     Route: 042
     Dates: start: 20041124
  26. ONCOVIN [Suspect]
     Indication: NON-HODGKIN'S LYMPHOMA
     Dosage: 1 MG,  INTRAVENOUS
     Route: 042
     Dates: start: 20050112
  27. PREDISOLONE [Suspect]
     Indication: NON-HODGKIN'S LYMPHOMA
     Dosage: 100 MG, INTRAVENOUS
     Route: 042
     Dates: start: 20040802
  28. POLARAMINE [Concomitant]

REACTIONS (3)
  - BLOOD CREATININE INCREASED [None]
  - NEUTROPHIL COUNT DECREASED [None]
  - WHITE BLOOD CELL COUNT DECREASED [None]
